FAERS Safety Report 11882050 (Version 1)
Quarter: 2015Q4

REPORT INFORMATION
  Report Type: Spontaneous
  Country: CH (occurrence: CH)
  Receive Date: 20151231
  Receipt Date: 20151231
  Transmission Date: 20160305
  Serious: Yes (Hospitalization)
  Sender: FDA-Public Use
  Company Number: CH-BAYER-2015-479639

PATIENT
  Age: 56 Year
  Sex: Female
  Weight: 75 kg

DRUGS (9)
  1. BELLADONNA EXTRACT [Concomitant]
     Active Substance: BELLADONNA LEAF
  2. FERRO SANOL [Concomitant]
     Active Substance: FERROUS SULFATE\GLYCINE
  3. ADEMPAS [Suspect]
     Active Substance: RIOCIGUAT
     Indication: PULMONARY HYPERTENSION
     Dosage: 2.5 MG, TID
  4. ADEMPAS [Suspect]
     Active Substance: RIOCIGUAT
     Indication: PULMONARY HYPERTENSION
     Dosage: UNK
     Dates: start: 201210
  5. PERENTEROL [SACCHAROMYCES BOULARDII] [Concomitant]
  6. TORASEMID [Concomitant]
     Active Substance: TORSEMIDE
  7. DAFALGAN [Concomitant]
     Active Substance: ACETAMINOPHEN
  8. NOVALGIN [Concomitant]
     Active Substance: METAMIZOLE SODIUM
  9. MOVICOL [Concomitant]
     Active Substance: POLYETHYLENE GLYCOL 3350\POTASSIUM CHLORIDE\SODIUM BICARBONATE\SODIUM CHLORIDE

REACTIONS (5)
  - Decubitus ulcer [Recovering/Resolving]
  - Vomiting [Unknown]
  - Immobile [Unknown]
  - Oxygen supplementation [Unknown]
  - Interstitial lung disease [Unknown]

NARRATIVE: CASE EVENT DATE: 20151128
